FAERS Safety Report 15206964 (Version 1)
Quarter: 2018Q3

REPORT INFORMATION
  Report Type: Spontaneous
  Country: SG (occurrence: SG)
  Receive Date: 20180727
  Receipt Date: 20180727
  Transmission Date: 20181010
  Serious: Yes (Hospitalization, Other)
  Sender: FDA-Public Use
  Company Number: SG-ELI_LILLY_AND_COMPANY-SG201807009924

PATIENT
  Age: 57 Year
  Sex: Male

DRUGS (1)
  1. OLANZAPINE. [Suspect]
     Active Substance: OLANZAPINE
     Indication: AGITATION
     Dosage: 2.5 MG, UNKNOWN
     Route: 065

REACTIONS (3)
  - Malignant catatonia [Recovered/Resolved]
  - Blood pressure systolic increased [Unknown]
  - Pyrexia [Recovered/Resolved]
